FAERS Safety Report 14195430 (Version 1)
Quarter: 2017Q4

REPORT INFORMATION
  Report Type: Spontaneous
  Country: US (occurrence: US)
  Receive Date: 20171116
  Receipt Date: 20171116
  Transmission Date: 20180321
  Serious: Yes (Death)
  Sender: FDA-Public Use
  Company Number: US-PFIZER INC-2017338091

PATIENT
  Age: 41 Year
  Sex: Male
  Weight: 87.48 kg

DRUGS (5)
  1. MIRALAX [Concomitant]
     Active Substance: POLYETHYLENE GLYCOL 3350
     Indication: CONSTIPATION
     Dosage: 17 G, 2X/DAY (DISSOLVED IN WATER)
     Dates: end: 20171024
  2. PANTOPRAZOLE [Concomitant]
     Active Substance: PANTOPRAZOLE
     Indication: GASTROOESOPHAGEAL REFLUX DISEASE
     Dosage: 40 MG, 1X/DAY
     Route: 048
     Dates: end: 20171024
  3. KEPPRA [Concomitant]
     Active Substance: LEVETIRACETAM
     Indication: SEIZURE
     Dosage: 1000 MG, 2X/DAY
     Route: 048
     Dates: end: 20171024
  4. XALKORI [Suspect]
     Active Substance: CRIZOTINIB
     Indication: CHOLANGIOCARCINOMA
     Dosage: 250 MG, 2X/DAY
     Route: 048
     Dates: start: 201708, end: 20171013
  5. HYDROMORPHONE [Concomitant]
     Active Substance: HYDROMORPHONE
     Indication: PAIN
     Dosage: 100 MG, UNK
     Route: 042
     Dates: start: 20171019, end: 20171024

REACTIONS (2)
  - Neoplasm progression [Fatal]
  - Product use in unapproved indication [Unknown]

NARRATIVE: CASE EVENT DATE: 201708
